FAERS Safety Report 4852979-1 (Version None)
Quarter: 2005Q4

REPORT INFORMATION
  Report Type: 
  Country: None (occurrence: None)
  Receive Date: 20051212
  Receipt Date: 20041104
  Transmission Date: 20060501
  Serious: Yes (Congenital Anomaly)
  Sender: FDA-Public Use
  Company Number: 2004S1000248

PATIENT
  Sex: Female
  Weight: 1.4969 kg

DRUGS (1)
  1. ACITRETIN (ACITRETIN) (10 MG) [Suspect]
     Dosage: 10 MG QD TRPL

REACTIONS (19)
  - ATRIAL SEPTAL DEFECT [None]
  - CONGENITAL ANOMALY [None]
  - CONGENITAL EYE DISORDER [None]
  - CONGENITAL FOOT MALFORMATION [None]
  - CONGENITAL NOSE MALFORMATION [None]
  - DEAFNESS NEUROSENSORY [None]
  - DEVELOPMENTAL DELAY [None]
  - DRUG EXPOSURE DURING PREGNANCY [None]
  - EAR MALFORMATION [None]
  - ELECTROENCEPHALOGRAM ABNORMAL [None]
  - FACIAL DYSMORPHISM [None]
  - HEART DISEASE CONGENITAL [None]
  - HIGH ARCHED PALATE [None]
  - HYPOACUSIS [None]
  - HYPOTONIA [None]
  - MICROCEPHALY [None]
  - NEONATAL RESPIRATORY DISTRESS SYNDROME [None]
  - NEURODEVELOPMENTAL DISORDER [None]
  - RETINOIC ACID SYNDROME [None]
